FAERS Safety Report 7233159-1 (Version None)
Quarter: 2011Q1

REPORT INFORMATION
  Report Type: 
  Country: None (occurrence: None)
  Receive Date: 20110119
  Receipt Date: 20110111
  Transmission Date: 20110831
  Serious: Yes (Hospitalization)
  Sender: FDA-Public Use
  Company Number: PHHO2010GB14736

PATIENT
  Sex: Male
  Weight: 89.2 kg

DRUGS (5)
  1. CALCIUM [Concomitant]
  2. PREDNISOLONE [Concomitant]
  3. VITAMIN D [Concomitant]
  4. DOCETAXEL [Suspect]
     Dosage: UNK
     Dates: start: 20100910
  5. ZOLEDRONATE [Suspect]
     Indication: METASTASES TO BONE
     Dosage: UNK
     Route: 042
     Dates: start: 20100910

REACTIONS (7)
  - ANAEMIA [None]
  - FEBRILE NEUTROPENIA [None]
  - COUGH [None]
  - LOWER RESPIRATORY TRACT INFECTION [None]
  - PLEURAL FLUID ANALYSIS [None]
  - DYSPNOEA [None]
  - PYREXIA [None]
